FAERS Safety Report 8006395-4 (Version None)
Quarter: 2011Q4

REPORT INFORMATION
  Report Type: 
  Country: None (occurrence: None)
  Receive Date: 20111226
  Receipt Date: 20111220
  Transmission Date: 20120403
  Serious: Yes (Hospitalization, Other)
  Sender: FDA-Public Use
  Company Number: PHHY2011JP85953

PATIENT
  Sex: Female

DRUGS (9)
  1. PERSANTIN [Suspect]
     Dosage: 75 MG
     Route: 048
  2. LOSARTAN POTASSIUM [Concomitant]
  3. LOCHOLEST [Suspect]
     Dosage: 20 MG, QD
     Route: 048
     Dates: start: 20110101, end: 20110307
  4. REQUIP [Suspect]
     Dosage: 4 MG
     Route: 048
     Dates: end: 20110307
  5. SYMMETREL [Concomitant]
  6. RABEPRAZOLE SODIUM [Concomitant]
  7. COMTAN [Concomitant]
  8. SENNA FRUIT EXTRACT [Concomitant]
  9. MENEST [Concomitant]

REACTIONS (6)
  - COMPARTMENT SYNDROME [None]
  - SWELLING [None]
  - PAIN [None]
  - INFLAMMATION [None]
  - BLOOD CREATINE PHOSPHOKINASE INCREASED [None]
  - RHABDOMYOLYSIS [None]
